FAERS Safety Report 6087970-3 (Version None)
Quarter: 2009Q1

REPORT INFORMATION
  Report Type: 
  Country: None (occurrence: None)
  Receive Date: 20090219
  Receipt Date: 20090211
  Transmission Date: 20090719
  Serious: Yes (Death)
  Sender: FDA-Public Use
  Company Number: 2009AL000850

PATIENT
  Sex: Male

DRUGS (1)
  1. DIGOXIN [Suspect]
     Dosage: PO
     Route: 048

REACTIONS (5)
  - ECONOMIC PROBLEM [None]
  - EMOTIONAL DISORDER [None]
  - INJURY [None]
  - PAIN [None]
  - SOCIAL AVOIDANT BEHAVIOUR [None]
